FAERS Safety Report 8182004-9 (Version None)
Quarter: 2012Q1

REPORT INFORMATION
  Report Type: 
  Country: None (occurrence: None)
  Receive Date: 20120302
  Receipt Date: 20120218
  Transmission Date: 20120608
  Serious: Yes (Other)
  Sender: FDA-Public Use
  Company Number: DE-JNJFOC-20120300692

PATIENT
  Age: 43 Year
  Sex: Female

DRUGS (6)
  1. MELPERONE [Suspect]
     Indication: PRODUCT USED FOR UNKNOWN INDICATION
     Route: 048
     Dates: start: 20120201, end: 20120201
  2. CLOPIDOGREL [Suspect]
     Indication: PRODUCT USED FOR UNKNOWN INDICATION
     Route: 048
     Dates: start: 20120201, end: 20120201
  3. IBUPROFEN TABLETS [Suspect]
     Indication: PRODUCT USED FOR UNKNOWN INDICATION
     Route: 048
     Dates: start: 20120201, end: 20120201
  4. ENOXAPARIN SODIUM [Suspect]
     Indication: PRODUCT USED FOR UNKNOWN INDICATION
     Route: 058
     Dates: start: 20120201, end: 20120201
  5. CHLORPROTHIXENE [Suspect]
     Indication: PRODUCT USED FOR UNKNOWN INDICATION
     Route: 048
     Dates: start: 20120201, end: 20120201
  6. ATARAX [Suspect]
     Indication: PRODUCT USED FOR UNKNOWN INDICATION
     Route: 048
     Dates: start: 20120201, end: 20120201

REACTIONS (4)
  - SUICIDE ATTEMPT [None]
  - VOMITING [None]
  - SOMNOLENCE [None]
  - MULTIPLE DRUG OVERDOSE INTENTIONAL [None]
